FAERS Safety Report 8767116 (Version 1)
Quarter: 2012Q4

REPORT INFORMATION
  Report Type: 
  Country: JP (occurrence: JP)
  Receive Date: 20120903
  Receipt Date: 20120903
  Transmission Date: 20130627
  Serious: Yes (Other)
  Sender: FDA-Public Use
  Company Number: JP-ELI_LILLY_AND_COMPANY-JP201206003981

PATIENT
  Age: 36 Year
  Sex: Male

DRUGS (8)
  1. CYMBALTA [Suspect]
     Indication: MAJOR DEPRESSION
     Dosage: 40 mg, qd
     Route: 048
     Dates: start: 201201
  2. PAXIL [Concomitant]
     Indication: MAJOR DEPRESSION
     Dosage: UNK
     Route: 048
     Dates: start: 201003, end: 20120125
  3. PAXIL [Concomitant]
     Dosage: UNK
     Route: 048
     Dates: start: 20120126, end: 20120322
  4. PAXIL [Concomitant]
     Dosage: UNK
     Route: 048
     Dates: start: 20120323, end: 20120520
  5. PAXIL [Concomitant]
     Dosage: UNK
     Route: 048
     Dates: start: 20120521
  6. DEPAKENE [Concomitant]
     Indication: MAJOR DEPRESSION
     Dosage: 200 mg, bid
     Route: 048
     Dates: start: 2011
  7. ROHYPNOL [Concomitant]
     Dosage: 1 DF, qd
  8. HALCION [Concomitant]
     Dosage: 0.125 mg, qd

REACTIONS (2)
  - Loss of consciousness [Recovered/Resolved]
  - Headache [Unknown]
